FAERS Safety Report 10453416 (Version 1)
Quarter: 2014Q3

REPORT INFORMATION
  Report Type: Other
  Country: GB (occurrence: GB)
  Receive Date: 20140915
  Receipt Date: 20140915
  Transmission Date: 20150326
  Serious: Yes (Other)
  Sender: FDA-Public Use
  Company Number: GB-MYLAN-2014M1003496

PATIENT

DRUGS (6)
  1. MOMETASONE [Concomitant]
     Active Substance: MOMETASONE
     Dates: start: 20140603, end: 20140701
  2. MIRTAZAPINE. [Suspect]
     Active Substance: MIRTAZAPINE
     Dosage: 30 MG, TOTAL
     Dates: start: 20140804
  3. CERELLE [Concomitant]
     Dates: start: 20140722
  4. LOFEPRAMINE [Concomitant]
     Active Substance: LOFEPRAMINE
     Dates: start: 20140724, end: 20140808
  5. AMITRIPTYLINE HYDROCHLORIDE. [Concomitant]
     Active Substance: AMITRIPTYLINE HYDROCHLORIDE
     Dates: start: 20140722
  6. VENLAFAXINE [Concomitant]
     Active Substance: VENLAFAXINE HYDROCHLORIDE
     Dates: start: 20140429, end: 20140731

REACTIONS (1)
  - Restless legs syndrome [Recovered/Resolved]

NARRATIVE: CASE EVENT DATE: 20140804
